FAERS Safety Report 21324284 (Version 1)
Quarter: 2022Q3

REPORT INFORMATION
  Report Type: Spontaneous
  Country: US (occurrence: None)
  Receive Date: 20220912
  Receipt Date: 20220912
  Transmission Date: 20221027
  Serious: No
  Sender: FDA-Public Use
  Company Number: 2022A303699

PATIENT
  Sex: Female
  Weight: 50.8 kg

DRUGS (1)
  1. BREZTRI [Suspect]
     Active Substance: BUDESONIDE\FORMOTEROL\GLYCOPYRROLATE
     Indication: Obstructive airways disorder
     Route: 055

REACTIONS (7)
  - Head discomfort [Recovered/Resolved]
  - Anxiety [Unknown]
  - Product dose omission issue [Not Recovered/Not Resolved]
  - Product taste abnormal [Recovered/Resolved]
  - Wrong technique in product usage process [Recovered/Resolved]
  - Off label use [Not Recovered/Not Resolved]
  - Device malfunction [Recovered/Resolved]

NARRATIVE: CASE EVENT DATE: 20220701
